FAERS Safety Report 5157018-3 (Version None)
Quarter: 2006Q4

REPORT INFORMATION
  Report Type: 
  Country: None (occurrence: None)
  Receive Date: 20061127
  Receipt Date: 20061116
  Transmission Date: 20070319
  Serious: Yes (Hospitalization)
  Sender: FDA-Public Use
  Company Number: US-JNJFOC-20061104599

PATIENT
  Sex: Female
  Weight: 90.72 kg

DRUGS (10)
  1. FENTANYL TRANSDERMAL SYSTEM [Suspect]
     Route: 062
  2. FENTANYL TRANSDERMAL SYSTEM [Suspect]
     Route: 062
  3. FENTANYL TRANSDERMAL SYSTEM [Suspect]
     Indication: BACK PAIN
     Route: 062
  4. FENTANYL [Suspect]
     Indication: BACK PAIN
     Route: 062
  5. SEROQUEL [Concomitant]
     Indication: HALLUCINATION, AUDITORY
     Dosage: 1 IN MORNING, 2 IN EVENING
     Route: 048
  6. VISTARIL [Concomitant]
     Indication: ANXIETY
     Route: 048
  7. NEXIUM [Concomitant]
     Indication: GASTROINTESTINAL DISORDER
     Route: 048
  8. WELLBUTRIN [Concomitant]
     Indication: DEPRESSION
     Route: 048
  9. DOXEPIN HCL [Concomitant]
     Indication: DEPRESSION
     Route: 048
  10. LORTAB [Concomitant]
     Indication: BREAKTHROUGH PAIN
     Route: 048

REACTIONS (4)
  - APPLICATION SITE RASH [None]
  - APPLICATION SITE REACTION [None]
  - ARTHRITIS [None]
  - MONARTHRITIS [None]
